FAERS Safety Report 8181122-9 (Version None)
Quarter: 2012Q1

REPORT INFORMATION
  Report Type: 
  Country: None (occurrence: None)
  Receive Date: 20120302
  Receipt Date: 20120222
  Transmission Date: 20120608
  Serious: Yes (Hospitalization)
  Sender: FDA-Public Use
  Company Number: US-BAYER-2011-049346

PATIENT
  Sex: Female
  Weight: 86.168 kg

DRUGS (2)
  1. YAZ [Suspect]
     Indication: CONTRACEPTION
     Dosage: UNK
     Dates: start: 20080701, end: 20090710
  2. IBUPROFEN (ADVIL) [Concomitant]
     Indication: DYSMENORRHOEA
     Dosage: 2 TABLETS EVERY 8 HOURS
     Route: 048
     Dates: start: 20090701

REACTIONS (11)
  - DEEP VEIN THROMBOSIS [None]
  - INJURY [None]
  - PAIN IN EXTREMITY [None]
  - INFLAMMATION [None]
  - LIMB DISCOMFORT [None]
  - SKIN DISCOLOURATION [None]
  - PAIN [None]
  - EMOTIONAL DISTRESS [None]
  - GENERAL PHYSICAL HEALTH DETERIORATION [None]
  - OEDEMA PERIPHERAL [None]
  - ANXIETY [None]
